FAERS Safety Report 8624997-9 (Version None)
Quarter: 2012Q3

REPORT INFORMATION
  Report Type: 
  Country: None (occurrence: None)
  Receive Date: 20120827
  Receipt Date: 20120821
  Transmission Date: 20120928
  Serious: Yes (Hospitalization)
  Sender: FDA-Public Use
  Company Number: PHHY2012GB072216

PATIENT
  Age: 36 Year
  Sex: Male
  Weight: 100.5 kg

DRUGS (2)
  1. METRONIDAZOLE [Suspect]
     Indication: DENTAL DISCOMFORT
     Route: 048
     Dates: start: 20120301
  2. TRIMOVATE [Concomitant]
     Indication: FUNGAL SKIN INFECTION
     Dosage: 1 DF, TID
     Route: 061
     Dates: start: 20120329

REACTIONS (6)
  - HALLUCINATION [None]
  - PARANOIA [None]
  - VISUAL IMPAIRMENT [None]
  - ANXIETY [None]
  - FEELING ABNORMAL [None]
  - TINNITUS [None]
